FAERS Safety Report 4991293-0 (Version None)
Quarter: 2006Q2

REPORT INFORMATION
  Report Type: 
  Country: None (occurrence: None)
  Receive Date: 20060428
  Receipt Date: 20060419
  Transmission Date: 20061013
  Serious: Yes (Other)
  Sender: FDA-Public Use
  Company Number: 2005159925

PATIENT
  Sex: Female

DRUGS (1)
  1. DETROL [Suspect]
     Indication: BLADDER DISORDER

REACTIONS (3)
  - DENTAL CARIES [None]
  - DRY MOUTH [None]
  - ENDODONTIC PROCEDURE [None]
